FAERS Safety Report 7778242-7 (Version None)
Quarter: 2011Q3

REPORT INFORMATION
  Report Type: 
  Country: None (occurrence: None)
  Receive Date: 20110926
  Receipt Date: 20110913
  Transmission Date: 20111222
  Serious: Yes (Other)
  Sender: FDA-Public Use
  Company Number: PHEH2011US04081

PATIENT
  Sex: Female

DRUGS (2)
  1. GLEEVEC [Suspect]
     Indication: CHRONIC MYELOID LEUKAEMIA
     Dosage: 400 MG, DAILY
     Route: 048
     Dates: start: 20110630
  2. ATELVIA [Concomitant]
     Dosage: UNK UKN, UNK
     Route: 065

REACTIONS (3)
  - PYREXIA [None]
  - PELVIC FRACTURE [None]
  - PAIN [None]
